FAERS Safety Report 7023637-2 (Version None)
Quarter: 2010Q3

REPORT INFORMATION
  Report Type: 
  Country: None (occurrence: None)
  Receive Date: 20100929
  Receipt Date: 20100929
  Transmission Date: 20110219
  Serious: No
  Sender: FDA-Public Use
  Company Number: None

PATIENT

DRUGS (3)
  1. HESPAN IN EXCEL PLASTIC CONTAINER [Suspect]
  2. HETASTARCH 6% IN 0.9% SODIUM CHLORIDE IN PLASTIC CONTAINER [Concomitant]
  3. HEPARIN SODIUM 25,000 UNITS IN DEXTROSE 5% IN PLASTIC CONTAINER [Suspect]

REACTIONS (2)
  - PRODUCT LABEL CONFUSION [None]
  - WRONG DRUG ADMINISTERED [None]
